FAERS Safety Report 9645790 (Version 1)
Quarter: 2013Q4

REPORT INFORMATION
  Report Type: Report from Study
  Country: US (occurrence: US)
  Receive Date: 20131025
  Receipt Date: 20131025
  Transmission Date: 20140711
  Serious: Yes (Hospitalization)
  Sender: FDA-Public Use
  Company Number: US-JNJFOC-20131011780

PATIENT
  Age: 17 Year
  Sex: Female
  Weight: 65 kg

DRUGS (8)
  1. REMICADE [Suspect]
     Indication: CROHN^S DISEASE
     Route: 042
     Dates: start: 20120220
  2. 5-ASA [Concomitant]
     Route: 054
  3. OXYCODONE [Concomitant]
     Route: 054
  4. ACETAMINOPHEN [Concomitant]
     Route: 065
  5. AMOXICILLIN [Concomitant]
     Route: 065
  6. PREDNISONE [Concomitant]
     Route: 065
  7. BUDESONIDE [Concomitant]
     Route: 065
  8. CHOLESTYRAMINE [Concomitant]
     Route: 065

REACTIONS (1)
  - Post procedural haemorrhage [Recovered/Resolved]
